FAERS Safety Report 8039686-1 (Version None)
Quarter: 2012Q1

REPORT INFORMATION
  Report Type: 
  Country: None (occurrence: None)
  Receive Date: 20120111
  Receipt Date: 20111217
  Transmission Date: 20120608
  Serious: No
  Sender: FDA-Public Use
  Company Number: US-AMGEN-USASP2011054912

PATIENT
  Age: 24 Year
  Sex: Female
  Weight: 65.76 kg

DRUGS (4)
  1. CLOBETASOL [Concomitant]
     Indication: ULCER
     Dosage: UNK UNK, PRN
     Route: 061
     Dates: start: 20070101
  2. KENALOG [Concomitant]
     Indication: ULCER
     Dosage: UNK UNK, PRN
     Dates: start: 20110712
  3. DESOGESTREL AND ETHINYL ESTRADIOL [Concomitant]
     Indication: CONTRACEPTION
     Dosage: 1/DAY
     Route: 048
     Dates: start: 20070101
  4. ENBREL [Suspect]
     Indication: PRODUCT USED FOR UNKNOWN INDICATION
     Dosage: 50 MG, 2 TIMES/WK
     Dates: start: 20110907

REACTIONS (2)
  - INJECTION SITE ERYTHEMA [None]
  - INJECTION SITE SWELLING [None]
